FAERS Safety Report 6245485-3 (Version None)
Quarter: 2009Q2

REPORT INFORMATION
  Report Type: 
  Country: None (occurrence: None)
  Receive Date: 20090619
  Receipt Date: 20090309
  Transmission Date: 20091009
  Serious: No
  Sender: FDA-Public Use
  Company Number: ALL1-2009-00620

PATIENT
  Age: 61 Year
  Sex: Female
  Weight: 54.4 kg

DRUGS (2)
  1. VYVANSE [Suspect]
     Indication: ATTENTION DEFICIT/HYPERACTIVITY DISORDER
     Dosage: 50 MG, 1X/2WKS, ORAL
     Route: 048
  2. THYROID TAB [Concomitant]

REACTIONS (3)
  - CHROMATURIA [None]
  - PSYCHOMOTOR HYPERACTIVITY [None]
  - TINNITUS [None]
